FAERS Safety Report 5867593-9 (Version None)
Quarter: 2008Q3

REPORT INFORMATION
  Report Type: 
  Country: None (occurrence: None)
  Receive Date: 20080902
  Receipt Date: 20071001
  Transmission Date: 20090109
  Serious: No
  Sender: FDA-Public Use
  Company Number: US-ABBOTT-07P-163-0419516-00

PATIENT
  Sex: Female
  Weight: 48.124 kg

DRUGS (2)
  1. DEPAKOTE ER [Suspect]
     Indication: ANXIETY
     Dosage: 500MG QAM, 1500MG QHS
     Route: 048
     Dates: start: 20060301
  2. RISPERIDONE [Concomitant]
     Indication: ANXIETY

REACTIONS (2)
  - MOBILITY DECREASED [None]
  - TREMOR [None]
